FAERS Safety Report 8126902-0 (Version None)
Quarter: 2012Q1

REPORT INFORMATION
  Report Type: 
  Country: None (occurrence: None)
  Receive Date: 20120210
  Receipt Date: 20120207
  Transmission Date: 20120608
  Serious: No
  Sender: FDA-Public Use
  Company Number: US-PFIZER INC-2012033699

PATIENT
  Sex: Female
  Weight: 28.118 kg

DRUGS (4)
  1. PREMARIN [Suspect]
     Dosage: 0.3MG EVERY OTHER DAY
     Dates: start: 20101117
  2. SIMVASTATIN [Concomitant]
     Indication: BLOOD CHOLESTEROL INCREASED
     Dosage: 20 MG, DAILY
  3. LEVOTHYROXINE SODIUM [Concomitant]
     Indication: HYPOTHYROIDISM
     Dosage: UNK
  4. PREMARIN [Suspect]
     Indication: HORMONE REPLACEMENT THERAPY
     Dosage: 0.3 MG, DAILY
     Route: 048

REACTIONS (2)
  - HOT FLUSH [None]
  - INSOMNIA [None]
